FAERS Safety Report 20617299 (Version 4)
Quarter: 2022Q2

REPORT INFORMATION
  Report Type: Report from Study
  Country: CA (occurrence: CA)
  Receive Date: 20220321
  Receipt Date: 20220512
  Transmission Date: 20220721
  Serious: Yes (Hospitalization)
  Sender: FDA-Public Use
  Company Number: CA-TAKEDA-2022TUS012248

PATIENT
  Age: 67 Year
  Sex: Male

DRUGS (4)
  1. IXAZOMIB [Suspect]
     Active Substance: IXAZOMIB
     Indication: Plasma cell myeloma
     Dosage: 4 MILLIGRAM
     Route: 048
     Dates: start: 20220214
  2. IXAZOMIB [Suspect]
     Active Substance: IXAZOMIB
     Dosage: 2.3 MILLIGRAM
     Route: 048
  3. PREDNISONE [Suspect]
     Active Substance: PREDNISONE
     Indication: Plasma cell myeloma
     Dosage: UNK
     Route: 065
     Dates: start: 20220217
  4. Covid-19 vaccine [Concomitant]
     Dosage: UNK
     Route: 065
     Dates: start: 20220218

REACTIONS (17)
  - General physical health deterioration [Unknown]
  - Gastrointestinal disorder [Unknown]
  - Asthenia [Unknown]
  - Hypersomnia [Recovered/Resolved]
  - Fall [Recovered/Resolved]
  - Somnolence [Recovered/Resolved]
  - Diarrhoea [Unknown]
  - Pain [Unknown]
  - COVID-19 immunisation [Unknown]
  - Gait inability [Unknown]
  - Mobility decreased [Unknown]
  - Confusional state [Unknown]
  - Malaise [Unknown]
  - Dysstasia [Unknown]
  - Decreased appetite [Unknown]
  - Drug ineffective [Unknown]
  - Off label use [Unknown]

NARRATIVE: CASE EVENT DATE: 20220217
